FAERS Safety Report 5834800-8 (Version None)
Quarter: 2008Q3

REPORT INFORMATION
  Report Type: 
  Country: None (occurrence: None)
  Receive Date: 20080801
  Receipt Date: 20080722
  Transmission Date: 20090109
  Serious: Yes (Hospitalization)
  Sender: FDA-Public Use
  Company Number: 167-20785-08071551

PATIENT
  Age: 70 Year
  Sex: Male
  Weight: 81 kg

DRUGS (17)
  1. THALIDOMIDE [Suspect]
     Indication: NON-SMALL CELL LUNG CANCER
     Dosage: 100 MG, 2 IN 1 D, ORAL
     Route: 048
     Dates: start: 20040903, end: 20041123
  2. CARBOPLATIN [Suspect]
     Indication: SMALL CELL LUNG CANCER STAGE UNSPECIFIED
     Dosage: 375 MG, INTRAVENOUS
     Route: 042
     Dates: start: 20041112, end: 20041112
  3. ETOPOSIDE [Suspect]
     Indication: SMALL CELL LUNG CANCER STAGE UNSPECIFIED
     Dosage: 175 MG, INTRAVENOUS
     Route: 042
     Dates: start: 20041112, end: 20041112
  4. PREDNISOLONE TAB [Concomitant]
  5. RISEDRONATE (RISEDRONATE SODIUM) [Concomitant]
  6. CALCEOS (LEKOVIT CA) [Concomitant]
  7. LANSOPRAZOLE [Concomitant]
  8. BECLOMETHASONE DIPROPIONATE [Concomitant]
  9. SALBUTAMOL          (SALBUTAMOL) (100 MILLIGRAM) [Concomitant]
  10. CELECOXIB [Concomitant]
  11. ASPIRIN [Concomitant]
  12. DOMPERIDONE (DOMPERIDONE) (10 MILLIGRAM) [Concomitant]
  13. CIPROFLOXACIN (CIPROFLOXACIN) (250 MILLIGRAM) [Concomitant]
  14. FLUCONAZOLE [Concomitant]
  15. DEXAMETHASONE TAB [Concomitant]
  16. NITRAZEPAM [Concomitant]
  17. MIXTARD (INITARD) [Concomitant]

REACTIONS (6)
  - CARDIAC ANEURYSM [None]
  - MYOCARDIAL INFARCTION [None]
  - MYOCARDIAL ISCHAEMIA [None]
  - PLEURAL EFFUSION [None]
  - PULMONARY EMBOLISM [None]
  - THROMBOSIS [None]
